FAERS Safety Report 14480398 (Version 3)
Quarter: 2018Q3

REPORT INFORMATION
  Report Type: Spontaneous
  Country: US (occurrence: US)
  Receive Date: 20180202
  Receipt Date: 20180724
  Transmission Date: 20181010
  Serious: Yes (Hospitalization, Other)
  Sender: FDA-Public Use
  Company Number: US-PFIZER INC-2018045916

PATIENT
  Age: 75 Year
  Sex: Female
  Weight: 86.18 kg

DRUGS (23)
  1. VITAMIN B12 [Concomitant]
     Active Substance: CYANOCOBALAMIN
     Dosage: 5000 UG, UNK (2 DAY)
  2. ASPIRIN. [Concomitant]
     Active Substance: ASPIRIN
     Dosage: 325 MG, DAILY
  3. OCTAGAM IMMUNE GLOBULIN (HUMAN) [Concomitant]
     Active Substance: HUMAN IMMUNOGLOBULIN G
     Dosage: UNK  INJECTIONS
  4. PROLIA [Concomitant]
     Active Substance: DENOSUMAB
     Dosage: INJECTION (GIVEN 14MAR2018 2 A YEAR)
     Dates: start: 20180314
  5. ADVIL LIQUI?GELS [Suspect]
     Active Substance: IBUPROFEN
     Indication: PAIN
  6. ADVIL LIQUI?GELS [Suspect]
     Active Substance: IBUPROFEN
     Indication: SPINAL PAIN
  7. HYDROXYZINE HCL [Concomitant]
     Active Substance: HYDROXYZINE HYDROCHLORIDE
     Indication: PRURITUS
     Dosage: 25 MG, AS NEEDED (STARTED YEARS AGO)
  8. TRAMADOL. [Concomitant]
     Active Substance: TRAMADOL
     Dosage: 50 MG, AS NEEDED (50 MG, EVERY 8 HRS, IF NEEDED)
     Dates: start: 20180521
  9. ALLERGY RELIEF (CHLORPHENIRAMINE MALEATE) [Concomitant]
     Active Substance: CHLORPHENIRAMINE MALEATE
     Dosage: 25 MG, AS NEEDED (DON;T NEED VERY OFTEN)
  10. ADVIL LIQUI?GELS [Suspect]
     Active Substance: IBUPROFEN
     Indication: EXOSTOSIS
     Dosage: (20MG ONCE A DAY): JUST TOOK 2 AND ITS 2:00 AFTERNOON
  11. HYDROCHLOROTHIAZIDE. [Concomitant]
     Active Substance: HYDROCHLOROTHIAZIDE
     Indication: BLOOD PRESSURE ABNORMAL
     Dosage: 25 MG, 1X/DAY (21MAY2018 OR 22MAY2018 ONLY TAKEN FOR 2 WEEKS)
     Dates: start: 201805
  12. D?3 [Concomitant]
     Active Substance: CHOLECALCIFEROL
     Indication: BONE DISORDER
     Dosage: 2000 IU, DAILY
  13. HYDROCODONE/ACETAMINOPHEN [Concomitant]
     Active Substance: ACETAMINOPHEN\HYDROCODONE
     Dosage: UNK (HYDROCODONE: 10 MG/ACETAMINOPHEN: 325 MG)
  14. EQUATE [Concomitant]
     Indication: SLEEP DISORDER
     Dosage: 50 MG, AS NEEDED (25 MG EA? ALWAYS TAKE 2)
  15. VITAMIN B6 [Concomitant]
     Active Substance: PYRIDOXINE HYDROCHLORIDE
     Dosage: 100 MG, DAILY (100MG ONE A DAY)
  16. CYCLOBENZAPRINE. [Concomitant]
     Active Substance: CYCLOBENZAPRINE
     Dosage: 10 MG, 3X/DAY
  17. TRAMADOL. [Concomitant]
     Active Substance: TRAMADOL
     Indication: PAIN
     Dosage: 50 MG, ONE AS NEEDED
  18. VITAMIN C [Concomitant]
     Active Substance: ASCORBIC ACID
     Dosage: 500 MG, 1X/DAY
  19. MAGNESIUM [Concomitant]
     Active Substance: MAGNESIUM
     Dosage: 400 MG, 1X/DAY
  20. FOLIC ACID. [Concomitant]
     Active Substance: FOLIC ACID
     Dosage: 800 UG, 1X/DAY
     Dates: start: 2018
  21. CALCIUM [Concomitant]
     Active Substance: CALCIUM
     Dosage: 600 MG, UNK (2 DAY)
  22. ADVIL LIQUI?GELS [Suspect]
     Active Substance: IBUPROFEN
     Indication: BACK PAIN
     Dosage: 400 MG, AS NEEDED (TAKES 2 AT NIGHT AS NEEDED)
  23. SLEEP AID [Concomitant]
     Active Substance: DIPHENHYDRAMINE HYDROCHLORIDE\DOXYLAMINE SUCCINATE
     Dosage: UNK UNK, AS NEEDED

REACTIONS (6)
  - Spinal compression fracture [Recovering/Resolving]
  - Heart rate decreased [Recovered/Resolved]
  - Vertebral osteophyte [Recovered/Resolved]
  - Hepatic cirrhosis [Recovered/Resolved]
  - Neoplasm malignant [Recovered/Resolved]
  - Product label confusion [Unknown]

NARRATIVE: CASE EVENT DATE: 2017
